FAERS Safety Report 10340222 (Version 1)
Quarter: 2014Q3

REPORT INFORMATION
  Report Type: Spontaneous
  Country: IT (occurrence: IT)
  Receive Date: 20140724
  Receipt Date: 20140724
  Transmission Date: 20150326
  Serious: Yes (Hospitalization)
  Sender: FDA-Public Use
  Company Number: IT-ASTRAZENECA-2014SE52161

PATIENT
  Age: 29007 Day
  Sex: Female

DRUGS (6)
  1. NEXIUM [Concomitant]
     Active Substance: ESOMEPRAZOLE MAGNESIUM
     Route: 048
  2. SELEPARINA [Suspect]
     Active Substance: NADROPARIN CALCIUM
     Indication: THROMBOSIS PROPHYLAXIS
     Dosage: 3800 UI ANTIXA/0.4ML, 1DF DAILY
     Route: 058
     Dates: start: 20140215, end: 20140228
  3. LASIX [Concomitant]
     Active Substance: FUROSEMIDE
     Route: 048
  4. BRILIQUE [Suspect]
     Active Substance: TICAGRELOR
     Indication: THROMBOSIS PROPHYLAXIS
     Route: 048
     Dates: start: 20140101, end: 20140228
  5. CARDIOASPIRIN [Suspect]
     Active Substance: ASPIRIN
     Indication: THROMBOSIS PROPHYLAXIS
     Route: 048
     Dates: start: 20140101, end: 20140228
  6. TRIATEC [Concomitant]
     Active Substance: RAMIPRIL
     Route: 048

REACTIONS (2)
  - Colitis ischaemic [Unknown]
  - Rectal haemorrhage [Unknown]

NARRATIVE: CASE EVENT DATE: 20140228
